FAERS Safety Report 5722160-2 (Version None)
Quarter: 2008Q2

REPORT INFORMATION
  Report Type: 
  Country: None (occurrence: None)
  Receive Date: 20080429
  Receipt Date: 20080207
  Transmission Date: 20081010
  Serious: Yes (Hospitalization)
  Sender: FDA-Public Use
  Company Number: SE-PFIZER INC-2008035646

PATIENT
  Sex: Female

DRUGS (2)
  1. HYDROXYZINE HYDROCHLORIDE [Suspect]
     Dosage: DAILY DOSE:325MG
     Route: 048
     Dates: start: 20071003, end: 20071003
  2. FLUOXETINE HYDROCHLORIDE [Suspect]

REACTIONS (7)
  - CONVULSION [None]
  - ELECTROCARDIOGRAM QT PROLONGED [None]
  - ELECTROCARDIOGRAM ST-T SEGMENT DEPRESSION [None]
  - INCORRECT DOSE ADMINISTERED [None]
  - INTENTIONAL OVERDOSE [None]
  - TACHYCARDIA [None]
  - VOMITING [None]
